FAERS Safety Report 8901136 (Version 1)
Quarter: 2012Q4

REPORT INFORMATION
  Report Type: Report from Study
  Country: BR (occurrence: BR)
  Receive Date: 20121109
  Receipt Date: 20121109
  Transmission Date: 20130627
  Serious: Yes (Hospitalization, Other)
  Sender: FDA-Public Use
  Company Number: BR-ROCHE-669713

PATIENT
  Age: 64 None
  Sex: Female
  Weight: 86 kg

DRUGS (23)
  1. RITUXIMAB [Suspect]
     Indication: RHEUMATOID ARTHRITIS
     Dosage: FORM: INFUSION;
     Route: 042
     Dates: start: 20080305, end: 20080320
  2. RITUXIMAB [Suspect]
     Route: 042
     Dates: start: 20081001, end: 20081005
  3. RITUXIMAB [Suspect]
     Route: 042
     Dates: start: 20090609, end: 20090623
  4. RITUXIMAB [Suspect]
     Route: 042
     Dates: start: 20091223, end: 20100113
  5. RITUXIMAB [Suspect]
     Route: 042
     Dates: start: 201007, end: 20110117
  6. RITUXIMAB [Suspect]
     Route: 042
  7. RITUXIMAB [Suspect]
     Route: 042
  8. BICONCOR [Concomitant]
     Indication: HYPERTENSION
     Route: 065
  9. LISADOR [Concomitant]
     Indication: PAIN
     Route: 065
  10. LORAX [Concomitant]
  11. FELDENE [Concomitant]
     Indication: PAIN
     Route: 065
  12. CALCIUM [Concomitant]
  13. OMEPRAZOLE [Concomitant]
  14. ACETAMINOPHEN [Concomitant]
     Indication: MUSCLE TIGHTNESS
     Route: 048
  15. CYCLOBENZAPRINE [Concomitant]
     Indication: MUSCLE TIGHTNESS
     Route: 048
  16. CYCLOBENZAPRINE [Concomitant]
     Route: 048
  17. CYCLOBENZAPRINE [Concomitant]
     Route: 048
  18. FLUOXETIN [Concomitant]
     Indication: MUSCLE TIGHTNESS
     Route: 048
  19. DIPYRONE [Concomitant]
     Route: 065
  20. SANDRENA [Concomitant]
     Indication: HYPERTENSION
  21. ATACAND [Concomitant]
     Dosage: 16 mg + 2 mg
     Route: 065
  22. PYRIDIUM [Concomitant]
  23. CIPROFLOXACIN HYDROCHLORIDE [Concomitant]
     Route: 065

REACTIONS (39)
  - Hepatic steatosis [Not Recovered/Not Resolved]
  - Cataract [Recovered/Resolved]
  - Pneumonia [Recovered/Resolved]
  - Visual impairment [Not Recovered/Not Resolved]
  - Pyrexia [Unknown]
  - Cough [Unknown]
  - Dyspnoea [Unknown]
  - Medical device implantation [Recovered/Resolved]
  - Nail disorder [Not Recovered/Not Resolved]
  - Pruritus [Recovering/Resolving]
  - Formication [Recovering/Resolving]
  - Paraesthesia [Not Recovered/Not Resolved]
  - Connective tissue disorder [Not Recovered/Not Resolved]
  - Tooth disorder [Unknown]
  - Body height decreased [Unknown]
  - Mouth injury [Unknown]
  - Tongue injury [Unknown]
  - Vulvovaginal burning sensation [Unknown]
  - Wound [Unknown]
  - Hyperhidrosis [Unknown]
  - Anaemia [Unknown]
  - Throat irritation [Recovered/Resolved]
  - Ear pruritus [Recovered/Resolved]
  - Oral pruritus [Recovering/Resolving]
  - Dizziness [Unknown]
  - Asthenia [Unknown]
  - Blood pressure fluctuation [Unknown]
  - Paraesthesia oral [Recovered/Resolved]
  - Mucosal dryness [Not Recovered/Not Resolved]
  - Pain [Not Recovered/Not Resolved]
  - Feeding disorder [Not Recovered/Not Resolved]
  - Sinusitis [Not Recovered/Not Resolved]
  - Bronchitis [Not Recovered/Not Resolved]
  - Eating disorder [Not Recovered/Not Resolved]
  - Urethral pain [Unknown]
  - Ear pain [Unknown]
  - Pharyngitis [Unknown]
  - Urine analysis abnormal [Unknown]
  - Blood pressure increased [Unknown]
